FAERS Safety Report 6579610-1 (Version None)
Quarter: 2010Q1

REPORT INFORMATION
  Report Type: 
  Country: None (occurrence: None)
  Receive Date: 20100209
  Receipt Date: 20100209
  Transmission Date: 20100710
  Serious: Yes (Life-Threatening)
  Sender: FDA-Public Use
  Company Number: None

PATIENT
  Age: 56 Year
  Sex: Female
  Weight: 102.9665 kg

DRUGS (2)
  1. DOXIL [Suspect]
     Indication: OVARIAN CANCER RECURRENT
     Dosage: IV DRIP
     Route: 041
     Dates: start: 20100127, end: 20100127
  2. DOXIL [Suspect]
     Indication: OVARIAN CANCER RECURRENT
     Dosage: IV DRIP
     Route: 041
     Dates: start: 20100127, end: 20100127

REACTIONS (10)
  - BACK PAIN [None]
  - BLOOD PRESSURE DECREASED [None]
  - BLOOD PRESSURE INCREASED [None]
  - CHEST PAIN [None]
  - COLD SWEAT [None]
  - DYSPNOEA [None]
  - ERYTHEMA [None]
  - HYPERHIDROSIS [None]
  - NAUSEA [None]
  - PAIN [None]
